FAERS Safety Report 12787619 (Version 2)
Quarter: 2016Q4

REPORT INFORMATION
  Report Type: Spontaneous
  Country: US (occurrence: US)
  Receive Date: 20160928
  Receipt Date: 20161219
  Transmission Date: 20170207
  Serious: Yes (Hospitalization)
  Sender: FDA-Public Use
  Company Number: US-ROCHE-1726697

PATIENT
  Sex: Female

DRUGS (5)
  1. ESBRIET [Suspect]
     Active Substance: PIRFENIDONE
     Indication: IDIOPATHIC PULMONARY FIBROSIS
     Route: 048
     Dates: start: 20160212, end: 20160309
  2. BABY ASA [Concomitant]
     Active Substance: ASPIRIN
  3. PEPCID AC [Concomitant]
     Active Substance: FAMOTIDINE
  4. PREDNISONE. [Concomitant]
     Active Substance: PREDNISONE
  5. ESBRIET [Suspect]
     Active Substance: PIRFENIDONE
     Route: 048

REACTIONS (8)
  - Pruritus [Unknown]
  - Nausea [Unknown]
  - Abdominal discomfort [Unknown]
  - Fibrosis [Unknown]
  - Anaemia [Unknown]
  - Malaise [Unknown]
  - Asthenia [Unknown]
  - Abdominal pain upper [Unknown]
